FAERS Safety Report 6637802-7 (Version None)
Quarter: 2010Q1

REPORT INFORMATION
  Report Type: 
  Country: None (occurrence: None)
  Receive Date: 20100315
  Receipt Date: 20100315
  Transmission Date: 20100710
  Serious: Yes (Other)
  Sender: FDA-Public Use
  Company Number: None

PATIENT
  Age: 23 Year
  Sex: Male
  Weight: 79.3795 kg

DRUGS (1)
  1. PROPECIA [Suspect]
     Indication: ALOPECIA
     Dosage: 1 MG DAILY PO
     Route: 048
     Dates: start: 20070701, end: 20071201

REACTIONS (2)
  - ERECTILE DYSFUNCTION [None]
  - LOSS OF LIBIDO [None]
